FAERS Safety Report 13711020 (Version 1)
Quarter: 2017Q3

REPORT INFORMATION
  Report Type: Spontaneous
  Country: CA (occurrence: CA)
  Receive Date: 20170703
  Receipt Date: 20170703
  Transmission Date: 20171127
  Serious: Yes (Other)
  Sender: FDA-Public Use
  Company Number: CA-BEH-2017081619

PATIENT
  Age: 56 Year
  Sex: Male

DRUGS (3)
  1. PRIVIGEN [Suspect]
     Active Substance: HUMAN IMMUNOGLOBULIN G
     Dosage: UNK
     Route: 065
     Dates: start: 20160601, end: 20160601
  2. PRIVIGEN [Suspect]
     Active Substance: HUMAN IMMUNOGLOBULIN G
     Indication: MUSCULAR WEAKNESS
     Dosage: 340 ML, TOT
     Route: 042
     Dates: start: 20160623, end: 20160623
  3. PRIVIGEN [Suspect]
     Active Substance: HUMAN IMMUNOGLOBULIN G
     Dosage: UNK
     Route: 065
     Dates: start: 20160531, end: 20160531

REACTIONS (7)
  - Increased viscosity of bronchial secretion [Unknown]
  - Chills [Unknown]
  - Tachycardia [Unknown]
  - Aspiration [Unknown]
  - Pyrexia [Unknown]
  - Febrile nonhaemolytic transfusion reaction [Unknown]
  - Tachypnoea [Unknown]

NARRATIVE: CASE EVENT DATE: 20160623
